FAERS Safety Report 5733314-3 (Version None)
Quarter: 2008Q2

REPORT INFORMATION
  Report Type: 
  Country: None (occurrence: None)
  Receive Date: 20080509
  Receipt Date: 20080506
  Transmission Date: 20081010
  Serious: Yes (Death, Hospitalization)
  Sender: FDA-Public Use
  Company Number: US-BRISTOL-MYERS SQUIBB COMPANY-14179014

PATIENT
  Age: 58 Year
  Sex: Female

DRUGS (1)
  1. IXEMPRA KIT [Suspect]
     Dates: start: 20080408

REACTIONS (3)
  - DEATH [None]
  - NEUTROPENIA [None]
  - THROMBOCYTOPENIA [None]
